FAERS Safety Report 6917110-7 (Version None)
Quarter: 2010Q3

REPORT INFORMATION
  Report Type: 
  Country: None (occurrence: None)
  Receive Date: 20100810
  Receipt Date: 20100802
  Transmission Date: 20110219
  Serious: Yes (Hospitalization)
  Sender: FDA-Public Use
  Company Number: B0668737A

PATIENT
  Age: 60 Year
  Sex: Male

DRUGS (2)
  1. OMACOR [Suspect]
     Dosage: 2000MG PER DAY
     Route: 048
     Dates: start: 20100607
  2. FERRUM [Concomitant]
     Dates: start: 20100607

REACTIONS (3)
  - ABDOMINAL PAIN [None]
  - ANAEMIA [None]
  - SPLENOMEGALY [None]
